FAERS Safety Report 5380460-2 (Version None)
Quarter: 2007Q3

REPORT INFORMATION
  Report Type: 
  Country: None (occurrence: None)
  Receive Date: 20070706
  Receipt Date: 20070625
  Transmission Date: 20080115
  Serious: Yes (Other)
  Sender: FDA-Public Use
  Company Number: US-ROCHE-476363

PATIENT
  Age: 50 Year
  Sex: Male

DRUGS (4)
  1. PEGASYS [Suspect]
     Dosage: STRENGTH REPORTED AS 180UG/0.5ML
     Route: 058
     Dates: start: 20060707, end: 20070604
  2. RIBAVIRIN [Suspect]
     Route: 048
     Dates: start: 20060707, end: 20061222
  3. RIBAVIRIN [Suspect]
     Route: 048
     Dates: start: 20061225, end: 20070604
  4. ANTIDEPRESSANT NOS [Concomitant]

REACTIONS (18)
  - AMMONIA INCREASED [None]
  - BLOOD MAGNESIUM DECREASED [None]
  - BLOOD POTASSIUM DECREASED [None]
  - CONFUSIONAL STATE [None]
  - DEPRESSION [None]
  - DYSPHONIA [None]
  - EPISTAXIS [None]
  - FATIGUE [None]
  - HAEMOPTYSIS [None]
  - HEADACHE [None]
  - INSOMNIA [None]
  - MUSCLE SPASMS [None]
  - NAUSEA [None]
  - PHARYNGEAL MASS [None]
  - SLEEP APNOEA SYNDROME [None]
  - THYROID DISORDER [None]
  - VOMITING [None]
  - WHITE BLOOD CELL COUNT DECREASED [None]
